FAERS Safety Report 10995710 (Version 2)
Quarter: 2015Q2

REPORT INFORMATION
  Report Type: Spontaneous
  Country: DE (occurrence: DE)
  Receive Date: 20150407
  Receipt Date: 20150504
  Transmission Date: 20150821
  Serious: Yes (Other)
  Sender: FDA-Public Use
  Company Number: DE-JNJFOC-20150403058

PATIENT
  Age: 25 Year
  Sex: Female
  Weight: 47 kg

DRUGS (6)
  1. VITAMIN D [Concomitant]
     Active Substance: CHOLECALCIFEROL
     Indication: PRODUCT USED FOR UNKNOWN INDICATION
     Route: 065
     Dates: start: 201212
  2. REMICADE [Suspect]
     Active Substance: INFLIXIMAB
     Indication: CROHN^S DISEASE
     Route: 042
     Dates: start: 201003, end: 20150324
  3. PREDNISONE. [Suspect]
     Active Substance: PREDNISONE
     Indication: CROHN^S DISEASE
     Dosage: HIGH DOSE
     Route: 065
     Dates: start: 2010
  4. PREDNISONE. [Suspect]
     Active Substance: PREDNISONE
     Indication: CROHN^S DISEASE
     Route: 065
     Dates: start: 2002
  5. AZATHIOPRINE. [Suspect]
     Active Substance: AZATHIOPRINE
     Indication: CROHN^S DISEASE
     Route: 065
     Dates: start: 2002
  6. SALOFALK [Suspect]
     Active Substance: MESALAMINE
     Indication: CROHN^S DISEASE
     Dosage: 500 (UNITS NOT SPECIFIED) 3 TABS
     Route: 065
     Dates: start: 2002

REACTIONS (3)
  - Retinal detachment [Not Recovered/Not Resolved]
  - Exposure during pregnancy [Recovered/Resolved]
  - Maculopathy [Not Recovered/Not Resolved]

NARRATIVE: CASE EVENT DATE: 2013
